FAERS Safety Report 5697438-1 (Version None)
Quarter: 2008Q2

REPORT INFORMATION
  Report Type: 
  Country: None (occurrence: None)
  Receive Date: 20080407
  Receipt Date: 20080326
  Transmission Date: 20081010
  Serious: Yes (Other)
  Sender: FDA-Public Use
  Company Number: PHHY2008NZ04232

PATIENT
  Sex: Male

DRUGS (1)
  1. CLOZARIL [Suspect]
     Indication: SCHIZOPHRENIA
     Route: 048
     Dates: start: 20070825

REACTIONS (4)
  - ERECTILE DYSFUNCTION [None]
  - SALIVARY HYPERSECRETION [None]
  - SEDATION [None]
  - WEIGHT INCREASED [None]
